FAERS Safety Report 24652461 (Version 1)
Quarter: 2024Q4

REPORT INFORMATION
  Report Type: Report from Study
  Country: IE (occurrence: IE)
  Receive Date: 20241122
  Receipt Date: 20241122
  Transmission Date: 20250115
  Serious: Yes (Hospitalization)
  Sender: BIOCON
  Company Number: IE-SA-2024SA302173

PATIENT

DRUGS (8)
  1. TRASTUZUMAB [Suspect]
     Active Substance: TRASTUZUMAB
     Indication: Colon cancer
     Dosage: 994 MG, Q3W (POWDER FOR CONCENTRATE AND SOLUTION FOR SOLUTION FOR INFUSION)
     Route: 042
     Dates: start: 20240902, end: 20240916
  2. OXALIPLATIN [Suspect]
     Active Substance: OXALIPLATIN
     Indication: Colon cancer
     Dosage: 150 MILLIGRAM, Q2W
     Route: 042
     Dates: start: 20240902, end: 20240916
  3. LOPERAMIDE [Suspect]
     Active Substance: LOPERAMIDE
     Indication: Diarrhoea
     Dosage: 4 MG, QD
     Route: 048
  4. TUCATINIB [Suspect]
     Active Substance: TUCATINIB
     Indication: Colon cancer
     Dosage: 200 MG, 2X/DAY
     Route: 065
     Dates: start: 20240902, end: 20240916
  5. FLUOROURACIL [Suspect]
     Active Substance: FLUOROURACIL
     Indication: Colon cancer
     Dosage: 738 MG, QOW
     Route: 065
     Dates: start: 20240902, end: 20240916
  6. FLUOROURACIL [Suspect]
     Active Substance: FLUOROURACIL
     Dosage: 4200 MILLIGRAM, Q2W
     Route: 065
     Dates: start: 20240902, end: 20240916
  7. LEUCOVORIN CALCIUM [Suspect]
     Active Substance: LEUCOVORIN CALCIUM
     Indication: Colon cancer
     Dosage: 922 MG, QOW
     Route: 042
     Dates: start: 20240902, end: 20240916
  8. METFORMIN [Concomitant]
     Active Substance: METFORMIN HYDROCHLORIDE
     Indication: Type 2 diabetes mellitus
     Dosage: UNK
     Route: 065
     Dates: start: 20240923, end: 20240925

REACTIONS (5)
  - Gastrointestinal stoma complication [Recovered/Resolved]
  - Acute kidney injury [Recovered/Resolved]
  - Oliguria [Recovered/Resolved]
  - Blood creatinine increased [Recovered/Resolved]
  - Diarrhoea [Recovered/Resolved]

NARRATIVE: CASE EVENT DATE: 20240925
